FAERS Safety Report 18915819 (Version 1)
Quarter: 2021Q1

REPORT INFORMATION
  Report Type: Spontaneous
  Country: US (occurrence: US)
  Receive Date: 20210219
  Receipt Date: 20210219
  Transmission Date: 20210420
  Serious: Yes (Hospitalization)
  Sender: FDA-Public Use
  Company Number: US-PFIZER INC-2021040385

PATIENT
  Age: 79 Year
  Sex: Female

DRUGS (2)
  1. NORPACE CR [Suspect]
     Active Substance: DISOPYRAMIDE PHOSPHATE
     Indication: VENTRICULAR ARRHYTHMIA
     Dosage: 250 MG, 2X/DAY (GOT THE 150MG AND THE 100MG EVERY MORNING AND NIGHT ONE OF EACH)
  2. NORPACE CR [Suspect]
     Active Substance: DISOPYRAMIDE PHOSPHATE
     Dosage: 500 MG, DAILY (3 OF THE 100S IN THE MORNING AND THEN TAKE 2 AT NIGHT)

REACTIONS (1)
  - Road traffic accident [Unknown]
